FAERS Safety Report 23573678 (Version 1)
Quarter: 2024Q1

REPORT INFORMATION
  Report Type: Spontaneous
  Country: MW (occurrence: MW)
  Receive Date: 20240228
  Receipt Date: 20240228
  Transmission Date: 20240409
  Serious: Yes (Life-Threatening, Hospitalization, Other)
  Sender: FDA-Public Use
  Company Number: MW-RISINGPHARMA-MW-2024RISLIT00046

PATIENT
  Age: 81 Year
  Sex: Male

DRUGS (7)
  1. LINEZOLID [Suspect]
     Active Substance: LINEZOLID
     Indication: Tuberculosis
     Route: 048
  2. BEDAQUILINE [Concomitant]
     Active Substance: BEDAQUILINE
     Indication: Tuberculosis
     Dosage: 400 MG FOR 2 WEEKS THEN 200 MG FOR 22 WEEKS MAKING A TOTAL OF 6 MONTHS
     Route: 048
  3. BEDAQUILINE [Concomitant]
     Active Substance: BEDAQUILINE
     Dosage: 400 MG FOR 2 WEEKS THEN 200 MG FOR 22 WEEKS MAKING A TOTAL OF 6 MONTHS
     Route: 048
  4. CLOFAZIMINE [Concomitant]
     Active Substance: CLOFAZIMINE
     Indication: Tuberculosis
     Route: 048
  5. CYCLOSERINE [Concomitant]
     Active Substance: CYCLOSERINE
     Indication: Multiple-drug resistance
     Route: 048
  6. LEVOFLOXACIN [Concomitant]
     Active Substance: LEVOFLOXACIN
     Indication: Tuberculosis
     Route: 048
  7. PYRIDOXINE [Concomitant]
     Active Substance: PYRIDOXINE
     Indication: Tuberculosis
     Route: 048

REACTIONS (2)
  - Haematemesis [Recovered/Resolved]
  - Product use in unapproved indication [Unknown]
